FAERS Safety Report 24965245 (Version 1)
Quarter: 2025Q1

REPORT INFORMATION
  Report Type: Spontaneous
  Country: US (occurrence: US)
  Receive Date: 20250213
  Receipt Date: 20250213
  Transmission Date: 20250408
  Serious: Yes (Life-Threatening, Hospitalization)
  Sender: HIKMA
  Company Number: US-MLMSERVICE-20250131-PI386441-00145-1

PATIENT

DRUGS (1)
  1. FENTANYL [Suspect]
     Active Substance: FENTANYL
     Indication: Product used for unknown indication
     Route: 065

REACTIONS (4)
  - Unresponsive to stimuli [Recovering/Resolving]
  - Cardiac arrest [Recovered/Resolved]
  - Brain injury [Recovering/Resolving]
  - Overdose [Recovering/Resolving]
